FAERS Safety Report 7688251-4 (Version None)
Quarter: 2011Q3

REPORT INFORMATION
  Report Type: 
  Country: None (occurrence: None)
  Receive Date: 20110817
  Receipt Date: 20110715
  Transmission Date: 20111222
  Serious: No
  Sender: FDA-Public Use
  Company Number: US-GLAXOSMITHKLINE-A0937371A

PATIENT
  Age: 56 Year
  Sex: Male

DRUGS (1)
  1. VOTRIENT [Suspect]
     Dosage: 400MG TWICE PER DAY
     Route: 065

REACTIONS (5)
  - NAUSEA [None]
  - ABDOMINAL PAIN UPPER [None]
  - GLOSSODYNIA [None]
  - SKIN DISCOLOURATION [None]
  - INAPPROPRIATE SCHEDULE OF DRUG ADMINISTRATION [None]
